FAERS Safety Report 8168956-1 (Version None)
Quarter: 2012Q1

REPORT INFORMATION
  Report Type: 
  Country: None (occurrence: None)
  Receive Date: 20120227
  Receipt Date: 20120219
  Transmission Date: 20120608
  Serious: Yes (Death, Hospitalization)
  Sender: FDA-Public Use
  Company Number: DE-US-EMD SERONO, INC.-7114203

PATIENT
  Sex: Male
  Weight: 65 kg

DRUGS (1)
  1. REBIF [Suspect]
     Indication: MULTIPLE SCLEROSIS
     Route: 058
     Dates: start: 20070101

REACTIONS (6)
  - INJECTION SITE ABSCESS [None]
  - PAIN [None]
  - GENERAL PHYSICAL CONDITION ABNORMAL [None]
  - PNEUMONIA [None]
  - FALL [None]
  - INJECTION SITE INDURATION [None]
